FAERS Safety Report 11326615 (Version 1)
Quarter: 2015Q3

REPORT INFORMATION
  Report Type: Spontaneous
  Country: US (occurrence: US)
  Receive Date: 20150731
  Receipt Date: 20150731
  Transmission Date: 20151125
  Serious: Yes (Hospitalization, Other)
  Sender: FDA-Public Use
  Company Number: US-BIOGENIDEC-2015BI105178

PATIENT
  Sex: Female

DRUGS (1)
  1. TECFIDERA [Suspect]
     Active Substance: DIMETHYL FUMARATE
     Indication: MULTIPLE SCLEROSIS
     Dates: start: 20131015, end: 20140501

REACTIONS (3)
  - Maternal exposure during pregnancy [Recovered/Resolved]
  - Multiple sclerosis relapse [Recovered/Resolved]
  - Foetal growth restriction [Recovered/Resolved]
